FAERS Safety Report 4917525-2 (Version None)
Quarter: 2006Q1

REPORT INFORMATION
  Report Type: 
  Country: None (occurrence: None)
  Receive Date: 20060221
  Receipt Date: 20060202
  Transmission Date: 20060701
  Serious: Yes (Hospitalization)
  Sender: FDA-Public Use
  Company Number: PHBS2006JP01981

PATIENT
  Age: 40 Year
  Sex: Male
  Weight: 54 kg

DRUGS (9)
  1. VOLTAREN [Suspect]
     Indication: ANALGESIC THERAPY
     Dosage: 50 MG, PRN
     Route: 054
     Dates: start: 20041215, end: 20050215
  2. VOLTAREN [Suspect]
     Dosage: 25 MG, TID
     Route: 048
     Dates: start: 20041124, end: 20041214
  3. LORCAM [Suspect]
     Indication: ANALGESIC THERAPY
     Dosage: 4 MG, TID
     Route: 048
     Dates: start: 20041221, end: 20050215
  4. LEFTOSE [Concomitant]
     Indication: SWELLING
     Dosage: 150 MG/DAY
     Route: 048
     Dates: start: 20041124, end: 20041207
  5. MUCOSTA [Concomitant]
     Indication: PROPHYLAXIS AGAINST GASTROINTESTINAL ULCER
     Dosage: 300 MG, BID
     Route: 048
     Dates: start: 20041124, end: 20050215
  6. KETOPROFEN [Concomitant]
     Indication: ANALGESIC THERAPY
     Dosage: 30 MG, TID
     Route: 062
     Dates: start: 20041201, end: 20041213
  7. MYONAL [Concomitant]
     Indication: HYPOTONIA
     Dosage: 150 MG, BID
     Route: 048
     Dates: start: 20041208, end: 20050215
  8. CYANOCOBALAMIN [Concomitant]
     Indication: NEUROPATHY PERIPHERAL
     Dosage: 1500 UG/DAY
     Route: 048
     Dates: start: 20050115, end: 20050215
  9. INTEBAN [Concomitant]
     Indication: ANALGESIC THERAPY
     Dosage: 50 G, TID
     Route: 062
     Dates: start: 20041215, end: 20041221

REACTIONS (5)
  - DUODENAL ULCER [None]
  - GASTRIC DISORDER [None]
  - HYPOAESTHESIA [None]
  - PAIN [None]
  - SURGERY [None]
